FAERS Safety Report 14101602 (Version 1)
Quarter: 2017Q4

REPORT INFORMATION
  Report Type: Spontaneous
  Country: US (occurrence: None)
  Receive Date: 20171018
  Receipt Date: 20171018
  Transmission Date: 20180321
  Serious: Yes (Hospitalization)
  Sender: FDA-Public Use
  Company Number: None

PATIENT
  Age: 58 Year
  Sex: Female
  Weight: 122.6 kg

DRUGS (1)
  1. ARIMIDEX [Suspect]
     Active Substance: ANASTROZOLE
     Dates: end: 20171006

REACTIONS (8)
  - Pyelonephritis [None]
  - Nephrolithiasis [None]
  - Back pain [None]
  - Urine abnormality [None]
  - Nausea [None]
  - Flank pain [None]
  - Pyrexia [None]
  - Cystitis [None]

NARRATIVE: CASE EVENT DATE: 20171007
